FAERS Safety Report 23513184 (Version 1)
Quarter: 2024Q1

REPORT INFORMATION
  Report Type: Spontaneous
  Country: US (occurrence: None)
  Receive Date: 20240209
  Receipt Date: 20240209
  Transmission Date: 20240410
  Serious: Yes (Hospitalization)
  Sender: FDA-Public Use
  Company Number: None

PATIENT
  Sex: Female

DRUGS (22)
  1. ZEPOSIA [Suspect]
     Active Substance: OZANIMOD HYDROCHLORIDE
     Indication: Multiple sclerosis
     Dosage: 0.92G ORAL
     Route: 048
  2. ABILIFY [Concomitant]
     Active Substance: ARIPIPRAZOLE
  3. ARIPIPRAZOLE [Concomitant]
     Active Substance: ARIPIPRAZOLE
  4. BIOTIN [Concomitant]
     Active Substance: BIOTIN
  5. COPAXONE [Concomitant]
     Active Substance: GLATIRAMER ACETATE
  6. DOCQLACE [Concomitant]
     Active Substance: DOCUSATE SODIUM
  7. GLUCOSAMINE [Concomitant]
     Active Substance: GLUCOSAMINE
  8. HYDROXYZINE HYDROCHLORIDE [Concomitant]
     Active Substance: HYDROXYZINE HYDROCHLORIDE
  9. HYDROXYZINE PAMOATE [Concomitant]
     Active Substance: HYDROXYZINE PAMOATE
  10. IBUPROFEN [Concomitant]
     Active Substance: IBUPROFEN
  11. LAMICTAL [Concomitant]
     Active Substance: LAMOTRIGINE
  12. NALTREXONE [Concomitant]
     Active Substance: NALTREXONE
  13. NAYZILAM SPR [Concomitant]
  14. NICOTINE POL GUM [Concomitant]
  15. OMEGA-3 ACIDS [Concomitant]
     Active Substance: OMEGA-3 FATTY ACIDS
  16. OXCARBAZEPINE [Concomitant]
     Active Substance: OXCARBAZEPINE
  17. OXCARBAZEPINE [Concomitant]
     Active Substance: OXCARBAZEPINE
  18. POLYETH GLYC POW NF [Concomitant]
  19. PREDNISONE [Concomitant]
     Active Substance: PREDNISONE
  20. SUPER B-COMP VIT C/FA [Concomitant]
  21. TRAZODONE [Concomitant]
     Active Substance: TRAZODONE HYDROCHLORIDE
  22. TYLENOL [Concomitant]
     Active Substance: ACETAMINOPHEN

REACTIONS (1)
  - Hospitalisation [None]
